FAERS Safety Report 17031718 (Version 1)
Quarter: 2019Q4

REPORT INFORMATION
  Report Type: Spontaneous
  Country: None (occurrence: GB)
  Receive Date: 20191114
  Receipt Date: 20191114
  Transmission Date: 20200122
  Serious: Yes (Other)
  Sender: FDA-Public Use
  Company Number: GB-BIO PRODUCTS LABORATORY LTD-2076846

PATIENT
  Age: 12 Month
  Sex: Female
  Weight: 8 kg

DRUGS (1)
  1. GENERIC IVIG [Suspect]
     Active Substance: HUMAN IMMUNOGLOBULIN G
     Route: 042

REACTIONS (6)
  - Tachycardia [Unknown]
  - Oxygen saturation decreased [Unknown]
  - Grunting [Unknown]
  - Chest discomfort [Unknown]
  - Pallor [Unknown]
  - Infusion related reaction [Unknown]
